FAERS Safety Report 7508697-4 (Version None)
Quarter: 2011Q2

REPORT INFORMATION
  Report Type: 
  Country: None (occurrence: None)
  Receive Date: 20110527
  Receipt Date: 20100729
  Transmission Date: 20111010
  Serious: No
  Sender: FDA-Public Use
  Company Number: A0872953A

PATIENT
  Age: 69 Year
  Sex: Female

DRUGS (7)
  1. FLUTICASONE NASAL SPRAY [Concomitant]
  2. GLYBURIDE [Concomitant]
  3. ADVAIR DISKUS 100/50 [Concomitant]
  4. METFORMIN HCL [Concomitant]
  5. ARTHROTEC [Concomitant]
  6. VENTOLIN [Suspect]
     Indication: ASTHMA
     Dosage: 2PUFF AS REQUIRED
     Route: 055
     Dates: start: 20100101
  7. HYDROXYCHLOROQUINE SULFATE [Concomitant]

REACTIONS (2)
  - DYSPNOEA [None]
  - PRODUCT QUALITY ISSUE [None]
